FAERS Safety Report 6705438-5 (Version None)
Quarter: 2010Q2

REPORT INFORMATION
  Report Type: 
  Country: None (occurrence: None)
  Receive Date: 20100503
  Receipt Date: 20100421
  Transmission Date: 20101027
  Serious: No
  Sender: FDA-Public Use
  Company Number: US-BIOGENIDEC-2010BI012593

PATIENT
  Age: 47 Year
  Sex: Female

DRUGS (1)
  1. TYSABRI [Suspect]
     Indication: MULTIPLE SCLEROSIS
     Route: 042
     Dates: start: 20091211

REACTIONS (6)
  - EAR INFECTION [None]
  - EAR PRURITUS [None]
  - HYPERSENSITIVITY [None]
  - ILLUSION [None]
  - INTERVERTEBRAL DISC PROTRUSION [None]
  - SINUSITIS [None]
